FAERS Safety Report 8456537-1 (Version None)
Quarter: 2012Q2

REPORT INFORMATION
  Report Type: 
  Country: None (occurrence: None)
  Receive Date: 20120621
  Receipt Date: 20120614
  Transmission Date: 20120825
  Serious: Yes (Hospitalization)
  Sender: FDA-Public Use
  Company Number: DE-ROCHE-1080159

PATIENT
  Sex: Male
  Weight: 72 kg

DRUGS (6)
  1. XOLAIR [Suspect]
     Indication: ASTHMA
     Dates: start: 20100413, end: 20120111
  2. XOLAIR [Suspect]
     Indication: MULTIPLE ALLERGIES
  3. SPIRIVA [Concomitant]
     Dates: start: 20090929
  4. NASONEX [Concomitant]
     Dates: start: 20091117
  5. SINGULAIR [Concomitant]
     Dates: start: 20080104
  6. SYMBICORT [Concomitant]
     Dosage: 320/9 UG
     Dates: start: 20080104

REACTIONS (5)
  - BLOOD IMMUNOGLOBULIN E INCREASED [None]
  - COMPUTERISED TOMOGRAM ABNORMAL [None]
  - PHAGOCYTOSIS [None]
  - LYMPHADENOPATHY [None]
  - URTICARIA THERMAL [None]
